FAERS Safety Report 16893723 (Version 1)
Quarter: 2019Q4

REPORT INFORMATION
  Report Type: Spontaneous
  Country: GB (occurrence: GB)
  Receive Date: 20191008
  Receipt Date: 20191008
  Transmission Date: 20200122
  Serious: Yes (Hospitalization, Other)
  Sender: FDA-Public Use
  Company Number: GB-MYLANLABS-2019M1092421

PATIENT
  Age: 65 Year
  Sex: Male

DRUGS (2)
  1. AZATHIOPRINE MYLAN [Suspect]
     Active Substance: AZATHIOPRINE
     Indication: NEUROSARCOIDOSIS
     Dosage: DOSE WAS PROGRESSIVELY INCREASED
     Route: 048
  2. ALLOPURINOL. [Interacting]
     Active Substance: ALLOPURINOL
     Indication: PRODUCT USED FOR UNKNOWN INDICATION
     Dosage: UNK

REACTIONS (8)
  - Anaemia [Unknown]
  - Sepsis [Unknown]
  - Labelled drug-drug interaction medication error [Unknown]
  - Neutropenia [Unknown]
  - Contraindicated product administered [Unknown]
  - Cardiac arrest [Unknown]
  - Cellulitis [Unknown]
  - Drug monitoring procedure incorrectly performed [Unknown]
